FAERS Safety Report 5793044-9 (Version None)
Quarter: 2008Q2

REPORT INFORMATION
  Report Type: 
  Country: None (occurrence: None)
  Receive Date: 20080627
  Receipt Date: 20080620
  Transmission Date: 20081010
  Serious: Yes (Hospitalization)
  Sender: FDA-Public Use
  Company Number: AR-ASTRAZENECA-2008UW12504

PATIENT
  Age: 61 Year
  Sex: Male

DRUGS (5)
  1. SEROQUEL [Suspect]
     Indication: BIPOLAR I DISORDER
     Route: 048
     Dates: start: 20080428
  2. SEROQUEL [Suspect]
     Route: 048
     Dates: start: 20080507, end: 20080601
  3. VENALAFAXINA [Concomitant]
     Dates: start: 20050101
  4. ATENOLOL [Concomitant]
  5. LITIO [Concomitant]

REACTIONS (1)
  - PANCYTOPENIA [None]
